FAERS Safety Report 15721136 (Version 1)
Quarter: 2018Q4

REPORT INFORMATION
  Report Type: Spontaneous
  Country: GB (occurrence: GB)
  Receive Date: 20181214
  Receipt Date: 20181214
  Transmission Date: 20190205
  Serious: Yes (Hospitalization, Other)
  Sender: FDA-Public Use
  Company Number: GB-TEVA-2018-GB-985945

PATIENT
  Age: 22 Year
  Sex: Female

DRUGS (3)
  1. CEFTRIAXONE. [Suspect]
     Active Substance: CEFTRIAXONE
     Indication: ANTIBIOTIC THERAPY
     Dosage: STAT
     Route: 030
  2. AZITHROMYCIN ANHYDROUS. [Suspect]
     Active Substance: AZITHROMYCIN ANHYDROUS
     Indication: ANTIBIOTIC THERAPY
     Route: 048
     Dates: start: 20181024, end: 20181025
  3. DOXYCYCLINE. [Suspect]
     Active Substance: DOXYCYCLINE
     Indication: ANTIBIOTIC THERAPY
     Dosage: 200 MILLIGRAM DAILY;
     Route: 048

REACTIONS (3)
  - Vomiting [Recovered/Resolved]
  - Abdominal pain [Unknown]
  - Dermatitis allergic [Recovered/Resolved]

NARRATIVE: CASE EVENT DATE: 20181025
